FAERS Safety Report 7540782-3 (Version None)
Quarter: 2011Q2

REPORT INFORMATION
  Report Type: 
  Country: None (occurrence: None)
  Receive Date: 20110610
  Receipt Date: 20110608
  Transmission Date: 20111010
  Serious: Yes (Hospitalization, Other)
  Sender: FDA-Public Use
  Company Number: BR-ABBOTT-11P-020-0726245-00

PATIENT
  Sex: Male
  Weight: 75 kg

DRUGS (5)
  1. AZATHIOPRINE [Concomitant]
     Dosage: 100MG DAILY
  2. HUMIRA [Suspect]
     Dosage: INDUCTION DOSE
  3. AZATHIOPRINE [Concomitant]
     Indication: PRODUCT USED FOR UNKNOWN INDICATION
     Dosage: 150MG DAILY, FORM STRENGTH: 50MG
  4. HUMIRA [Suspect]
     Indication: CROHN'S DISEASE
     Dosage: INDUCTION DOSE
  5. HUMIRA [Suspect]
     Dates: end: 20101201

REACTIONS (2)
  - GASTROINTESTINAL INFLAMMATION [None]
  - DRUG INEFFECTIVE [None]
